FAERS Safety Report 4992704-7 (Version None)
Quarter: 2006Q1

REPORT INFORMATION
  Report Type: 
  Country: None (occurrence: None)
  Receive Date: 20060313
  Receipt Date: 20060130
  Transmission Date: 20060701
  Serious: No
  Sender: FDA-Public Use
  Company Number: 2006-BP-01066BP

PATIENT
  Age: 53 Year
  Sex: Female

DRUGS (3)
  1. SPIRIVA [Suspect]
     Indication: CHRONIC OBSTRUCTIVE PULMONARY DISEASE
     Dosage: 18 MCG(18 MCG,QD),IH
     Dates: start: 20060101
  2. ALLEGRA [Concomitant]
  3. NASONEX [Concomitant]

REACTIONS (1)
  - DRUG INEFFECTIVE [None]
